FAERS Safety Report 9629587 (Version 2)
Quarter: 2014Q1

REPORT INFORMATION
  Report Type: Report from Study
  Country: US (occurrence: US)
  Receive Date: 20131017
  Receipt Date: 20140326
  Transmission Date: 20141002
  Serious: Yes (Other)
  Sender: FDA-Public Use
  Company Number: PHEH2013US021202

PATIENT
  Age: 17 Year
  Sex: Female

DRUGS (7)
  1. AFINITOR [Suspect]
     Indication: ASTROCYTOMA, LOW GRADE
     Dosage: 15 MG, DAILY
     Route: 048
     Dates: start: 20130518
  2. AFINITOR [Suspect]
     Dosage: 10 MG, DAILY
     Route: 048
     Dates: start: 201306
  3. AFINITOR [Suspect]
     Dosage: 7.5 MG, DAILY
     Route: 048
     Dates: start: 20131212
  4. LYSINE [Concomitant]
     Dosage: 500 MG, QD
     Route: 048
  5. ZOFRAN [Concomitant]
     Dosage: UNK UKN, UNK
  6. SOLODYN [Concomitant]
     Indication: ACNE
     Dosage: 80 MG, QD
     Route: 048
  7. RANITIDINE [Concomitant]
     Indication: REFLUX GASTRITIS
     Dosage: 150 MG, QD
     Route: 048

REACTIONS (5)
  - Ovarian cyst [Unknown]
  - Gastric disorder [Not Recovered/Not Resolved]
  - Pain in extremity [Recovering/Resolving]
  - Acne [Unknown]
  - Nausea [Not Recovered/Not Resolved]
